FAERS Safety Report 21790147 (Version 1)
Quarter: 2022Q4

REPORT INFORMATION
  Report Type: Spontaneous
  Country: US (occurrence: None)
  Receive Date: 20221228
  Receipt Date: 20221228
  Transmission Date: 20230112
  Serious: Yes (unspecified)
  Sender: FDA-Public Use
  Company Number: None

PATIENT
  Age: 67 Year
  Sex: Female
  Weight: 69.9 kg

DRUGS (4)
  1. DOXORUBICIN HYDROCHLORIDE [Suspect]
     Active Substance: DOXORUBICIN HYDROCHLORIDE
     Indication: Breast cancer
     Dosage: FREQUENCY : WEEKLY;?
     Route: 042
     Dates: start: 20221215
  2. DOXORUBICIN HYDROCHLORIDE [Suspect]
     Active Substance: DOXORUBICIN HYDROCHLORIDE
     Indication: Breast cancer
     Dosage: OTHER FREQUENCY : EVERY 7 DAYS;?
     Route: 042
     Dates: start: 20221215
  3. DEXAMETHASONE [Concomitant]
     Active Substance: DEXAMETHASONE
     Dates: start: 20221215
  4. DIPHENHYDRAMINE [Concomitant]
     Active Substance: DIPHENHYDRAMINE
     Dates: start: 20221215

REACTIONS (7)
  - Dyspnoea [None]
  - Flushing [None]
  - Nausea [None]
  - Vomiting [None]
  - Throat tightness [None]
  - Abdominal pain [None]
  - Infusion related reaction [None]

NARRATIVE: CASE EVENT DATE: 20221215
